FAERS Safety Report 23441964 (Version 1)
Quarter: 2024Q1

REPORT INFORMATION
  Report Type: Report from Study
  Country: DE (occurrence: DE)
  Receive Date: 20240125
  Receipt Date: 20240125
  Transmission Date: 20240409
  Serious: Yes (Hospitalization)
  Sender: FDA-Public Use
  Company Number: DE-002147023-NVSC2022DE061799

PATIENT
  Age: 39 Year
  Sex: Female
  Weight: 61 kg

DRUGS (3)
  1. GOSERELIN [Suspect]
     Active Substance: GOSERELIN
     Indication: Breast cancer
     Dosage: 3.6 MG, Q4W
     Route: 065
     Dates: start: 20211214
  2. IBUPROFEN [Suspect]
     Active Substance: IBUPROFEN
     Indication: Headache
     Dosage: 400 MG/WEEK AS NEEDED OF MAXIMUM 3-4 PILLS
     Route: 048
     Dates: start: 20220106, end: 20220307
  3. LETROZOLE [Suspect]
     Active Substance: LETROZOLE
     Indication: Breast cancer
     Dosage: 2.5 MG, QD
     Route: 048
     Dates: start: 20211230, end: 20220310

REACTIONS (1)
  - Drug-induced liver injury [Recovered/Resolved]

NARRATIVE: CASE EVENT DATE: 20220325
